FAERS Safety Report 6010559-9 (Version None)
Quarter: 2008Q4

REPORT INFORMATION
  Report Type: 
  Country: None (occurrence: None)
  Receive Date: 20081218
  Receipt Date: 20080501
  Transmission Date: 20090506
  Serious: Yes (Other)
  Sender: FDA-Public Use
  Company Number: US-AMGEN-QUU271707

PATIENT
  Sex: Female
  Weight: 59.5 kg

DRUGS (28)
  1. ENBREL [Suspect]
     Indication: PSORIASIS
     Dates: start: 20070323, end: 20080416
  2. FISH OIL [Concomitant]
     Route: 048
  3. ASPIRIN [Concomitant]
     Route: 048
  4. TRAVATAN [Concomitant]
     Route: 047
  5. TRAVATAN [Concomitant]
     Route: 047
  6. ALPHAGAN [Concomitant]
     Route: 047
  7. ALREX [Concomitant]
     Route: 047
  8. SPIRIVA [Concomitant]
     Route: 055
  9. ALBUTEROL + IPRATROPIUM INHALER [Concomitant]
     Route: 055
  10. ATROVENT [Concomitant]
  11. VALTREX [Concomitant]
     Route: 048
  12. OLUX [Concomitant]
  13. FOSAMAX [Concomitant]
     Route: 048
  14. CALCIUM WITH VITAMIN D [Concomitant]
     Route: 048
  15. XANAX [Concomitant]
     Route: 048
  16. DARVOCET-N 100 [Concomitant]
     Route: 048
  17. SKELAXIN [Concomitant]
  18. DESOWEN [Concomitant]
     Route: 061
  19. TYLENOL (CAPLET) [Concomitant]
     Route: 048
  20. BENADRYL [Concomitant]
     Route: 048
  21. TRIAMCINOLONE ACETONIDE [Concomitant]
     Route: 061
  22. OXYGEN [Concomitant]
  23. ATACAND [Concomitant]
     Route: 048
  24. AZOPT [Concomitant]
     Route: 047
  25. PNEUMOCOCCAL VACCINE [Concomitant]
     Dates: start: 20071108, end: 20071108
  26. INFLUENZA VACCINE [Concomitant]
     Dates: start: 20071031, end: 20071031
  27. UNSPECIFIED MEDICATION [Concomitant]
  28. UNSPECIFIED MEDICATION [Concomitant]

REACTIONS (1)
  - BLADDER CANCER [None]
